FAERS Safety Report 9704509 (Version 1)
Quarter: 2013Q4

REPORT INFORMATION
  Report Type: Report from Study
  Country: ID (occurrence: ID)
  Receive Date: 20131122
  Receipt Date: 20131122
  Transmission Date: 20140711
  Serious: Yes (Death, Hospitalization, Other)
  Sender: FDA-Public Use
  Company Number: ID-ROCHE-1307160

PATIENT
  Sex: Female

DRUGS (1)
  1. MABTHERA [Suspect]
     Indication: LYMPHOMA
     Route: 065
     Dates: start: 20131022

REACTIONS (3)
  - Metastases to bone [Fatal]
  - General physical health deterioration [Fatal]
  - White blood cell count decreased [Unknown]
